FAERS Safety Report 5035593-7 (Version None)
Quarter: 2006Q2

REPORT INFORMATION
  Report Type: 
  Country: None (occurrence: None)
  Receive Date: 20060526
  Receipt Date: 20060301
  Transmission Date: 20061013
  Serious: Yes (Other)
  Sender: FDA-Public Use
  Company Number: FABR-11426

PATIENT
  Age: 67 Year
  Sex: Female
  Weight: 58 kg

DRUGS (1)
  1. FABRAZYME [Suspect]
     Indication: FABRY'S DISEASE
     Dosage: 60 MG Q2WKS IV
     Route: 042
     Dates: start: 20031211

REACTIONS (1)
  - CEREBROVASCULAR ACCIDENT [None]
